FAERS Safety Report 4334465-0 (Version None)
Quarter: 2004Q1

REPORT INFORMATION
  Report Type: 
  Country: None (occurrence: None)
  Receive Date: 20040325
  Receipt Date: 20031231
  Transmission Date: 20041129
  Serious: No
  Sender: FDA-Public Use
  Company Number: USA040155705

PATIENT
  Sex: Female

DRUGS (2)
  1. FORTEO [Suspect]
     Dates: start: 20031201
  2. BEXTRA [Concomitant]

REACTIONS (2)
  - ABDOMINAL PAIN UPPER [None]
  - MIGRAINE [None]
